FAERS Safety Report 10200471 (Version 1)
Quarter: 2014Q2

REPORT INFORMATION
  Report Type: Spontaneous
  Country: US (occurrence: US)
  Receive Date: 20140528
  Receipt Date: 20140528
  Transmission Date: 20141212
  Serious: Yes (Other)
  Sender: FDA-Public Use
  Company Number: US-BEH-2014042706

PATIENT
  Age: 11 Year
  Sex: Female

DRUGS (1)
  1. HIZENTRA [Suspect]
     Indication: HYPOGAMMAGLOBULINAEMIA
     Route: 058

REACTIONS (4)
  - Coeliac disease [Unknown]
  - Helicobacter test positive [Unknown]
  - Anti-transglutaminase antibody increased [Unknown]
  - Blood immunoglobulin A increased [Unknown]
